FAERS Safety Report 9188289 (Version 1)
Quarter: 2013Q1

REPORT INFORMATION
  Report Type: Spontaneous
  Country: US (occurrence: US)
  Receive Date: 20130325
  Receipt Date: 20130325
  Transmission Date: 20140127
  Serious: Yes (Other)
  Sender: FDA-Public Use
  Company Number: US-BAYER-2013-033842

PATIENT
  Age: 79 Year
  Sex: Male
  Weight: 88.44 kg

DRUGS (9)
  1. BAYER GENUINE ASPIRIN ORIGINAL STRENGTH [Suspect]
     Indication: PRODUCT USED FOR UNKNOWN INDICATION
     Dosage: 1 DOSE, PRN
     Route: 048
     Dates: start: 1999
  2. PLAVIX [Concomitant]
  3. GLIMEPIRIDE [Concomitant]
  4. METFORMIN [Concomitant]
  5. CRESTOR [Concomitant]
  6. FESOTERODINE [Concomitant]
  7. FENOFIBRATE [Concomitant]
  8. CALCIUM [Concomitant]
  9. FISH OIL [Concomitant]

REACTIONS (1)
  - Haemorrhage urinary tract [Recovered/Resolved]
